FAERS Safety Report 6615417-4 (Version None)
Quarter: 2010Q1

REPORT INFORMATION
  Report Type: 
  Country: None (occurrence: None)
  Receive Date: 20100305
  Receipt Date: 20091204
  Transmission Date: 20100710
  Serious: No
  Sender: FDA-Public Use
  Company Number: A0817264A

PATIENT
  Sex: Female

DRUGS (3)
  1. REQUIP [Suspect]
     Indication: PARKINSONISM
     Dosage: 5MG THREE TIMES PER DAY
     Route: 048
     Dates: start: 20030902, end: 20080301
  2. ZOLOFT [Concomitant]
  3. CARBIDOPA-LEVODOPA [Concomitant]

REACTIONS (1)
  - PATHOLOGICAL GAMBLING [None]
